FAERS Safety Report 21959311 (Version 1)
Quarter: 2023Q1

REPORT INFORMATION
  Report Type: Spontaneous
  Country: US (occurrence: None)
  Receive Date: 20230203
  Receipt Date: 20230203
  Transmission Date: 20230418
  Serious: Yes (Other)
  Sender: FDA-Public Use
  Company Number: None

PATIENT
  Sex: Female

DRUGS (14)
  1. PROLIA [Suspect]
     Active Substance: DENOSUMAB
     Indication: Osteoporosis
     Dosage: FREQUENCY : AS DIRECTED;?
     Route: 058
     Dates: start: 20190628
  2. AMIODARONE [Concomitant]
     Active Substance: AMIODARONE
  3. ASPIRIN LOW TAB [Concomitant]
  4. CLONIDINE [Concomitant]
     Active Substance: CLONIDINE
  5. CRESTOR [Concomitant]
     Active Substance: ROSUVASTATIN CALCIUM
  6. EVENITY [Concomitant]
     Active Substance: ROMOSOZUMAB-AQQG
  7. FLUTICASONE [Concomitant]
     Active Substance: FLUTICASONE
  8. NORCO [Concomitant]
     Active Substance: ACETAMINOPHEN\HYDROCODONE BITARTRATE
  9. PROAIR HFA AER [Concomitant]
  10. SOMA [Concomitant]
     Active Substance: CARISOPRODOL
  11. TORSEMIDE [Concomitant]
     Active Substance: TORSEMIDE
  12. XANAX [Concomitant]
     Active Substance: ALPRAZOLAM
  13. ZANTAC [Concomitant]
     Active Substance: RANITIDINE HYDROCHLORIDE
  14. ZETIA [Concomitant]
     Active Substance: EZETIMIBE

REACTIONS (4)
  - Cerebrovascular accident [None]
  - Myocardial infarction [None]
  - Lower limb fracture [None]
  - Pain [None]
